FAERS Safety Report 6290131-6 (Version None)
Quarter: 2009Q3

REPORT INFORMATION
  Report Type: 
  Country: None (occurrence: None)
  Receive Date: 20090730
  Receipt Date: 20081205
  Transmission Date: 20100115
  Serious: No
  Sender: FDA-Public Use
  Company Number: US-BRISTOL-MYERS SQUIBB COMPANY-14432413

PATIENT
  Age: 68 Year
  Sex: Male
  Weight: 103 kg

DRUGS (6)
  1. COUMADIN [Suspect]
     Indication: ATRIAL FIBRILLATION
     Dosage: ON 15NOV STARTED AS 5MG/D, DECREASED TO 4MG/D AFTER 1 WEEK AND ON 3DEC08 STOPPED FOR 3DAYS.
     Dates: start: 20081114
  2. OXAPROZIN [Concomitant]
  3. METOPROLOL TARTRATE [Concomitant]
  4. PREVACID [Concomitant]
  5. SINGULAIR [Concomitant]
  6. CARTIA XT [Concomitant]

REACTIONS (2)
  - FATIGUE [None]
  - INTERNATIONAL NORMALISED RATIO INCREASED [None]
